FAERS Safety Report 12588658 (Version 1)
Quarter: 2016Q3

REPORT INFORMATION
  Report Type: Spontaneous
  Country: US (occurrence: US)
  Receive Date: 20160725
  Receipt Date: 20160725
  Transmission Date: 20161109
  Serious: No
  Sender: FDA-Public Use
  Company Number: US-JNJFOC-20160603550

PATIENT
  Age: 73 Year
  Sex: Female
  Weight: 90.72 kg

DRUGS (21)
  1. LEVOTHYROXINE. [Concomitant]
     Active Substance: LEVOTHYROXINE
     Indication: HYPOTHYROIDISM
     Dosage: 75MG PER DAY, 35 YEARS
     Route: 065
  2. SENNA LEAF [Concomitant]
     Active Substance: SENNA LEAF
     Indication: CONSTIPATION
     Route: 065
  3. PROPANOLOL [Concomitant]
     Active Substance: PROPRANOLOL HYDROCHLORIDE
     Indication: HYPERTENSION
     Dosage: 40MG, 2 TIMES PER DAY, 22 YEARS
     Route: 065
  4. CALCIUM AND VIT D [Concomitant]
     Active Substance: CALCIUM\VITAMIN D
     Indication: ROUTINE HEALTH MAINTENANCE
     Dosage: 600/ 2 TIMES PER DAY
     Route: 065
  5. ZYRTEC-D [Suspect]
     Active Substance: CETIRIZINE HYDROCHLORIDE\PSEUDOEPHEDRINE HYDROCHLORIDE
     Indication: SEASONAL ALLERGY
     Dosage: 1 TABLET, A COUPLE OF TIMES A WEEK AS NEEDED
     Route: 048
     Dates: start: 20101031
  6. LISINOPRIL. [Concomitant]
     Active Substance: LISINOPRIL
     Indication: HYPERTENSION
     Dosage: 15MG / 2 TIMES PER DAY, 5 YEARS
     Route: 065
  7. SYMBICORT [Concomitant]
     Active Substance: BUDESONIDE\FORMOTEROL FUMARATE DIHYDRATE
     Indication: ASTHMA
     Dosage: 80/4.5/2 DAY,6 YEARS
     Route: 065
  8. BROMELAIN [Concomitant]
     Active Substance: BROMELAINS
     Indication: ROUTINE HEALTH MAINTENANCE
     Route: 065
  9. MAGNESIUM [Concomitant]
     Active Substance: MAGNESIUM
     Indication: ROUTINE HEALTH MAINTENANCE
     Route: 065
  10. PROPOLIS [Concomitant]
     Active Substance: PROPOLIS WAX
     Indication: ROUTINE HEALTH MAINTENANCE
     Route: 065
  11. D-MANNOSE [Concomitant]
     Indication: CYSTITIS
     Route: 065
  12. ZYRTEC-D [Suspect]
     Active Substance: CETIRIZINE HYDROCHLORIDE\PSEUDOEPHEDRINE HYDROCHLORIDE
     Route: 048
  13. VITAMIN D3 [Concomitant]
     Active Substance: CHOLECALCIFEROL
     Indication: ROUTINE HEALTH MAINTENANCE
     Route: 065
  14. PROBIOTICS NOS [Concomitant]
     Active Substance: PROBIOTICS NOS
     Indication: ROUTINE HEALTH MAINTENANCE
     Route: 065
  15. HYDROCHLOROTHIAZIDE. [Concomitant]
     Active Substance: HYDROCHLOROTHIAZIDE
     Indication: DIURETIC THERAPY
     Dosage: 25 PER DAY (PILL), 37 YEARS
     Route: 065
  16. WARFARIN [Concomitant]
     Active Substance: WARFARIN
     Indication: ANTICOAGULANT THERAPY
     Dosage: 4MG PER DAY, 6 YEARS
     Route: 065
  17. POTASSIUM [Concomitant]
     Active Substance: POTASSIUM
     Indication: PRODUCT USED FOR UNKNOWN INDICATION
     Dosage: 20MG PER 2 DAYS, 10 YEARS (REPLACES FROM WATER PILL THAT WASHES OUT)
     Route: 065
  18. BEE POLLEN [Concomitant]
     Active Substance: BEE POLLEN
     Indication: ROUTINE HEALTH MAINTENANCE
     Route: 065
  19. QUERCETIN [Concomitant]
     Active Substance: QUERCETIN
     Indication: ROUTINE HEALTH MAINTENANCE
     Route: 065
  20. ZINC [Concomitant]
     Active Substance: ZINC\ZINC CHLORIDE
     Indication: ROUTINE HEALTH MAINTENANCE
     Route: 065
  21. CAT^S CLAW [Concomitant]
     Active Substance: CAT^S CLAW
     Indication: ARTHRITIS
     Route: 065

REACTIONS (1)
  - Hypertension [Recovered/Resolved]

NARRATIVE: CASE EVENT DATE: 20160529
